FAERS Safety Report 22971945 (Version 2)
Quarter: 2023Q4

REPORT INFORMATION
  Report Type: Report from Study
  Country: US (occurrence: US)
  Receive Date: 20230922
  Receipt Date: 20231003
  Transmission Date: 20240110
  Serious: No
  Sender: FDA-Public Use
  Company Number: US-SANOFI-01764002

PATIENT
  Age: 63 Year
  Sex: Female

DRUGS (4)
  1. DUPILUMAB [Suspect]
     Active Substance: DUPILUMAB
     Indication: Asthma
     Dosage: 600 MG, 1X
     Route: 058
     Dates: start: 20230831, end: 20230831
  2. DUPILUMAB [Suspect]
     Active Substance: DUPILUMAB
     Dosage: 300 MG, QOW
     Route: 058
     Dates: start: 20230918
  3. PREDNISONE [Concomitant]
     Active Substance: PREDNISONE
     Dosage: UNK
     Dates: start: 20230812, end: 20230817
  4. PREDNISONE [Concomitant]
     Active Substance: PREDNISONE
     Dosage: UNK
     Dates: start: 20230828, end: 20230907

REACTIONS (33)
  - Polyuria [Unknown]
  - Abdominal pain [Unknown]
  - Asthenia [Unknown]
  - Pain in extremity [Unknown]
  - Headache [Unknown]
  - Fatigue [Unknown]
  - Gait disturbance [Unknown]
  - Influenza [Unknown]
  - Cough [Unknown]
  - Chest discomfort [Unknown]
  - Nasal congestion [Unknown]
  - Chills [Unknown]
  - Pyrexia [Unknown]
  - Palpitations [Unknown]
  - Sinus operation [Unknown]
  - Sputum increased [Unknown]
  - Productive cough [Unknown]
  - Dyspnoea [Unknown]
  - Insomnia [Unknown]
  - Feeling abnormal [Unknown]
  - Illness [Unknown]
  - Tinnitus [Unknown]
  - Skin swelling [Unknown]
  - Pain [Unknown]
  - Pustule [Unknown]
  - Oropharyngeal discomfort [Unknown]
  - Hypoaesthesia [Unknown]
  - Drug hypersensitivity [Unknown]
  - Oropharyngeal pain [Unknown]
  - Arthralgia [Unknown]
  - Asthma [Unknown]
  - Rash [Unknown]
  - Pruritus [Unknown]

NARRATIVE: CASE EVENT DATE: 20230101
